FAERS Safety Report 16399489 (Version 1)
Quarter: 2019Q2

REPORT INFORMATION
  Report Type: Spontaneous
  Country: US (occurrence: US)
  Receive Date: 20190606
  Receipt Date: 20190606
  Transmission Date: 20190711
  Serious: Yes (Other)
  Sender: FDA-Public Use
  Company Number: US-GLAXOSMITHKLINE-US2019AMR073084

PATIENT
  Age: 46 Year

DRUGS (2)
  1. METFORMIN [Suspect]
     Active Substance: METFORMIN HYDROCHLORIDE
     Indication: PRODUCT USED FOR UNKNOWN INDICATION
     Dosage: 500 MG, UNK
  2. BREO ELLIPTA [Suspect]
     Active Substance: FLUTICASONE FUROATE\VILANTEROL TRIFENATATE
     Indication: PRODUCT USED FOR UNKNOWN INDICATION

REACTIONS (10)
  - Decreased appetite [Unknown]
  - Liver disorder [Unknown]
  - Hypersensitivity [Unknown]
  - Volvulus [Unknown]
  - Asthma [Unknown]
  - Toxicity to various agents [Unknown]
  - Multiple allergies [Unknown]
  - Off label use [Unknown]
  - General physical health deterioration [Unknown]
  - Renal disorder [Unknown]
